FAERS Safety Report 12496555 (Version 1)
Quarter: 2016Q2

REPORT INFORMATION
  Report Type: Spontaneous
  Country: US (occurrence: US)
  Receive Date: 20160624
  Receipt Date: 20160624
  Transmission Date: 20160815
  Serious: No
  Sender: FDA-Public Use
  Company Number: PHEH2016US015031

PATIENT
  Sex: Female

DRUGS (1)
  1. COSENTYX [Suspect]
     Active Substance: SECUKINUMAB
     Indication: PSORIASIS
     Dosage: 300 MG, QW
     Route: 058
     Dates: start: 20160513, end: 20160605

REACTIONS (7)
  - Fungal infection [Unknown]
  - Blister [Unknown]
  - Hordeolum [Unknown]
  - Conjunctivitis [Unknown]
  - Dermal cyst [Unknown]
  - Acne cystic [Unknown]
  - Lymphadenopathy [Unknown]
